FAERS Safety Report 12435348 (Version 2)
Quarter: 2017Q2

REPORT INFORMATION
  Report Type: Spontaneous
  Country: US (occurrence: US)
  Receive Date: 20160603
  Receipt Date: 20170607
  Transmission Date: 20170830
  Serious: Yes (Other)
  Sender: FDA-Public Use
  Company Number: US-ROCHE-1734075

PATIENT

DRUGS (32)
  1. BACLOFEN. [Concomitant]
     Active Substance: BACLOFEN
     Dosage: TAKE 1 TABLET BY MOUTH FOUR TIMES A DAY AS NEEDED
     Route: 048
  2. CRANBERRY. [Concomitant]
     Active Substance: CRANBERRY
     Dosage: TAKE 1 CAPSULE BY MOUTH ONCE A DAY
     Route: 048
  3. FLONASE ALLERGY RELIEF [Concomitant]
     Active Substance: FLUTICASONE PROPIONATE
     Dosage: 1-2 SPRAY INTO BOTH NOSTRILS TWICE A DAY
     Route: 065
  4. OXYMORPHONE [Concomitant]
     Active Substance: OXYMORPHONE
     Dosage: TAKE 1 TABLET BY MOUTH THREE TIMES A DAY
     Route: 048
  5. PROMETHAZINE [Concomitant]
     Active Substance: PROMETHAZINE\PROMETHAZINE HYDROCHLORIDE
     Dosage: TAKE 1 TABLET BY MOUTH EVERY 4-6 HOURS AS NEEDED
     Route: 048
  6. CELEBREX [Suspect]
     Active Substance: CELECOXIB
     Indication: PRODUCT USED FOR UNKNOWN INDICATION
     Route: 065
  7. ZOLOFT [Suspect]
     Active Substance: SERTRALINE HYDROCHLORIDE
     Dosage: TAKE 1 TABLET BY MOUTH AT BEDTIME
     Route: 048
  8. ARAVA [Concomitant]
     Active Substance: LEFLUNOMIDE
     Dosage: TAKE 1 TABLET BY MOUTH ONCE A DAY
     Route: 048
  9. NAPROXEN. [Suspect]
     Active Substance: NAPROXEN
     Indication: PRODUCT USED FOR UNKNOWN INDICATION
     Route: 065
  10. TYLENOL ARTHRITIS PAIN [Concomitant]
     Active Substance: ACETAMINOPHEN
     Dosage: TAKE 2 TABLET BY MOUTH THREE TIMES A DAY
     Route: 048
  11. KLONOPIN [Suspect]
     Active Substance: CLONAZEPAM
     Indication: PRODUCT USED FOR UNKNOWN INDICATION
     Route: 065
  12. DOCUSATE SODIUM. [Concomitant]
     Active Substance: DOCUSATE SODIUM
     Dosage: TAKE 2 TABLET AT BEDTIME
     Route: 065
  13. LEVOTHYROXINE. [Concomitant]
     Active Substance: LEVOTHYROXINE
     Dosage: TAKE 1 TABLET BY MOUTH ONCE A DAY
     Route: 048
  14. MAGNESIUM OXIDE. [Concomitant]
     Active Substance: MAGNESIUM OXIDE
     Dosage: TAKE 1 CAPSULE BY MOUTH AT BEDTIME
     Route: 048
  15. VITAMIN D3 [Concomitant]
     Active Substance: CHOLECALCIFEROL
     Dosage: 5000 UNIT TABLET?TAKE 1 TABLET BY MOUTH ONCE A DAY
     Route: 048
  16. LYRICA [Suspect]
     Active Substance: PREGABALIN
     Route: 048
  17. ZYRTEC [Suspect]
     Active Substance: CETIRIZINE HYDROCHLORIDE
     Indication: PRODUCT USED FOR UNKNOWN INDICATION
     Dosage: TAKE 1 TABLET BY MOUTH ONCE A DAY
     Route: 048
  18. ACIDOPHILUS [Concomitant]
     Active Substance: LACTOBACILLUS ACIDOPHILUS
     Dosage: TAKE 1 CAPSULE ONCE A DAY
     Route: 065
  19. PILOCARPINE HCL [Concomitant]
     Active Substance: PILOCARPINE HYDROCHLORIDE
     Dosage: TAKE 1 TABLET BY MOUTH THRICE A DAY
     Route: 048
  20. PROVENTIL HFA [Concomitant]
     Active Substance: ALBUTEROL SULFATE
     Dosage: INHALE 2 PUFF EVERY 4-6 HOURS AS NEEDED
     Route: 065
  21. RANITIDINE HCL [Concomitant]
     Active Substance: RANITIDINE HYDROCHLORIDE
     Dosage: TAKE 1 CAPSULE BY MOUTH TWICE A DAY AS NEEDED
     Route: 048
  22. VOLTAREN [Concomitant]
     Active Substance: DICLOFENAC SODIUM
     Indication: PAIN
     Dosage: APPLY 4 GRAM TO AFFECTED AREA 4X A DAY AS NEEDED
     Route: 065
  23. ATORVASTATIN [Concomitant]
     Active Substance: ATORVASTATIN
     Dosage: TAKE 1 TABLET BY MOUTH ONCE A DAY
     Route: 048
  24. GABAPENTIN. [Concomitant]
     Active Substance: GABAPENTIN
     Dosage: TAKE 1 TABLET BY MOUTH THREE TIMES A DAY
     Route: 048
  25. MONTELUKAST [Concomitant]
     Active Substance: MONTELUKAST SODIUM
     Dosage: TAKE 1 TABLET BY MOUTH AT BEDTIME
     Route: 048
  26. PANTOPRAZOLE [Concomitant]
     Active Substance: PANTOPRAZOLE
     Dosage: TAKE 1 TABLET BY MOUTH ONCE A DAY
     Route: 048
  27. ROPINIROLE. [Concomitant]
     Active Substance: ROPINIROLE
     Dosage: TAKE 1 TABLET BY MOUTH AT BEDTIME
     Route: 048
  28. VITAMIN B12 [Concomitant]
     Active Substance: CYANOCOBALAMIN
     Dosage: TAKE 1 TWICE A DAY
     Route: 065
  29. LYRICA [Suspect]
     Active Substance: PREGABALIN
     Indication: PRODUCT USED FOR UNKNOWN INDICATION
     Route: 048
  30. ZOLOFT [Suspect]
     Active Substance: SERTRALINE HYDROCHLORIDE
     Indication: PRODUCT USED FOR UNKNOWN INDICATION
     Dosage: TAKE 2 TABLET AT BEDTIME
     Route: 065
  31. FUROSEMIDE. [Concomitant]
     Active Substance: FUROSEMIDE
     Dosage: TAKE 1 TABLET BY MOUTH TWICE A DAY
     Route: 048
  32. POTASSIUM CHLORIDE. [Concomitant]
     Active Substance: POTASSIUM CHLORIDE
     Dosage: TAKE 1 TABLET TWICE A DAY
     Route: 065

REACTIONS (1)
  - Hypersensitivity [Unknown]
